FAERS Safety Report 5924911-0 (Version None)
Quarter: 2008Q4

REPORT INFORMATION
  Report Type: 
  Country: None (occurrence: None)
  Receive Date: 20081017
  Receipt Date: 20081017
  Transmission Date: 20090506
  Serious: Yes (Life-Threatening)
  Sender: FDA-Public Use
  Company Number: None

PATIENT
  Age: 59 Year
  Sex: Female

DRUGS (2)
  1. HUMIRA [Suspect]
     Indication: RHEUMATOID ARTHRITIS
     Dosage: 40MG QOW SQ
     Route: 058
     Dates: start: 20040101, end: 20080718
  2. ENBREL [Suspect]
     Dosage: 50 MG QW SQ
     Route: 058
     Dates: start: 20080718, end: 20080829

REACTIONS (2)
  - PULMONARY EMBOLISM [None]
  - RENAL CELL CARCINOMA [None]
